FAERS Safety Report 15348101 (Version 1)
Quarter: 2018Q3

REPORT INFORMATION
  Report Type: Spontaneous
  Country: US (occurrence: US)
  Receive Date: 20180904
  Receipt Date: 20180904
  Transmission Date: 20181010
  Serious: No
  Sender: FDA-Public Use
  Company Number: US-TEVA-2018-US-950075

PATIENT
  Sex: Female

DRUGS (1)
  1. CLINDAMYCIN W/TRETINOIN [Suspect]
     Active Substance: CLINDAMYCIN PHOSPHATE\TRETINOIN
     Indication: ACNE
     Route: 065

REACTIONS (2)
  - Product use complaint [Unknown]
  - Acne [Unknown]
